FAERS Safety Report 15695247 (Version 1)
Quarter: 2018Q4

REPORT INFORMATION
  Report Type: Spontaneous
  Country: US (occurrence: US)
  Receive Date: 20181206
  Receipt Date: 20181206
  Transmission Date: 20190205
  Serious: Yes (Death)
  Sender: FDA-Public Use
  Company Number: US-INCYTE CORPORATION-2018IN012103

PATIENT

DRUGS (1)
  1. JAKAFI [Suspect]
     Active Substance: RUXOLITINIB
     Indication: CHRONIC GRAFT VERSUS HOST DISEASE
     Dosage: UNK
     Route: 065

REACTIONS (6)
  - Pneumonia cytomegaloviral [Fatal]
  - Bronchopulmonary aspergillosis [Fatal]
  - Product use in unapproved indication [Unknown]
  - Graft versus host disease in lung [Fatal]
  - Mycobacterium avium complex infection [Fatal]
  - Mycobacterium abscessus infection [Fatal]
